FAERS Safety Report 5809474-2 (Version None)
Quarter: 2008Q3

REPORT INFORMATION
  Report Type: 
  Country: None (occurrence: None)
  Receive Date: 20080715
  Receipt Date: 20080619
  Transmission Date: 20090109
  Serious: No
  Sender: FDA-Public Use
  Company Number: JP-ELI_LILLY_AND_COMPANY-JP200806001664

PATIENT
  Age: 52 Year
  Sex: Female

DRUGS (6)
  1. ZYPREXA [Suspect]
     Indication: SCHIZOPHRENIA
     Dosage: 15 MG, DAILY (1/D)
     Route: 048
     Dates: start: 20080301
  2. TEGRETOL [Concomitant]
     Dosage: 800 MG, DAILY (1/D)
     Route: 048
  3. HYDANTOL [Concomitant]
     Dosage: 200 MG, DAILY (1/D)
     Route: 048
  4. GLYSENNID [Concomitant]
     Dosage: 36 MG, DAILY (1/D)
     Route: 048
  5. HIRNAMIN [Concomitant]
     Dosage: 100 MG, DAILY (1/D)
     Route: 048
  6. BLONANSERIN [Concomitant]
     Indication: SCHIZOPHRENIA
     Dosage: 2 MG, DAILY (1/D)
     Route: 048

REACTIONS (1)
  - WHITE BLOOD CELL COUNT DECREASED [None]
